FAERS Safety Report 16262051 (Version 1)
Quarter: 2019Q2

REPORT INFORMATION
  Report Type: Spontaneous
  Country: US (occurrence: US)
  Receive Date: 20190501
  Receipt Date: 20190501
  Transmission Date: 20190711
  Serious: Yes (Death)
  Sender: FDA-Public Use
  Company Number: US-ABBVIE-19P-163-2761173-00

PATIENT
  Age: 2 Month
  Sex: Male
  Weight: 4.8 kg

DRUGS (3)
  1. PROPOFOL. [Suspect]
     Active Substance: PROPOFOL
     Indication: INDUCTION OF ANAESTHESIA
     Route: 042
  2. SEVOFLURANE. [Suspect]
     Active Substance: SEVOFLURANE
     Dosage: REDUCED TO 3% IMMEDIATELY AFTER INTUBATION
     Route: 055
  3. SEVOFLURANE. [Suspect]
     Active Substance: SEVOFLURANE
     Indication: INDUCTION OF ANAESTHESIA
     Dosage: MAXIMUM CONCENTRATION OF 8%
     Route: 055

REACTIONS (1)
  - Cardiac arrest [Fatal]
